FAERS Safety Report 23497786 (Version 1)
Quarter: 2024Q1

REPORT INFORMATION
  Report Type: Spontaneous
  Country: US (occurrence: None)
  Receive Date: 20240207
  Receipt Date: 20240207
  Transmission Date: 20240410
  Serious: No
  Sender: FDA-Public Use
  Company Number: US-ROCHE-3304978

PATIENT

DRUGS (3)
  1. XOLAIR [Suspect]
     Active Substance: OMALIZUMAB
     Indication: Product used for unknown indication
     Route: 065
  2. ALECTINIB [Concomitant]
     Active Substance: ALECTINIB
  3. BRIGATINIB [Concomitant]
     Active Substance: BRIGATINIB

REACTIONS (1)
  - Drug tolerance [Unknown]
